FAERS Safety Report 5741359-2 (Version None)
Quarter: 2008Q2

REPORT INFORMATION
  Report Type: 
  Country: None (occurrence: None)
  Receive Date: 20080514
  Receipt Date: 20080502
  Transmission Date: 20081010
  Serious: Yes (Other)
  Sender: FDA-Public Use
  Company Number: 2008011973

PATIENT
  Age: 2 Year
  Sex: Male

DRUGS (1)
  1. ACTIFED [Suspect]
     Dosage: 2.5 ML DAILY AT NIGHT, ORAL
     Route: 048

REACTIONS (4)
  - CRYING [None]
  - HALLUCINATION [None]
  - PHARMACEUTICAL PRODUCT COMPLAINT [None]
  - SOMNOLENCE [None]
